FAERS Safety Report 8541318 (Version 7)
Quarter: 2013Q3

REPORT INFORMATION
  Report Type: Spontaneous
  Country: CA (occurrence: CA)
  Receive Date: 20120502
  Receipt Date: 20130716
  Transmission Date: 20140515
  Serious: Yes (Hospitalization)
  Sender: FDA-Public Use
  Company Number: CA-GLAXOSMITHKLINE-A0974850A

PATIENT
  Age: 69 Year
  Sex: Male
  Weight: 122.7 kg

DRUGS (12)
  1. HUMALOG MIX 25 [Concomitant]
  2. LASIX [Concomitant]
  3. ALVESCO [Concomitant]
  4. ADVAIR [Suspect]
     Indication: CHRONIC OBSTRUCTIVE PULMONARY DISEASE
     Dosage: 1PUFF TWICE PER DAY
     Route: 055
     Dates: start: 2010
  5. VENTOLIN [Suspect]
     Indication: CHRONIC OBSTRUCTIVE PULMONARY DISEASE
     Route: 065
  6. ASPIRIN [Concomitant]
  7. CRESTOR [Concomitant]
  8. RAMIPRIL [Concomitant]
  9. DETROL [Concomitant]
  10. HUMALOG [Concomitant]
  11. SPIRIVA [Concomitant]
  12. ACIPHEX [Concomitant]

REACTIONS (17)
  - Pneumonia [Recovered/Resolved]
  - Increased upper airway secretion [Recovered/Resolved]
  - Oral pain [Recovering/Resolving]
  - Malaise [Recovered/Resolved]
  - Dyspnoea [Unknown]
  - Somnolence [Recovered/Resolved]
  - Fatigue [Recovered/Resolved]
  - Lung disorder [Recovered/Resolved]
  - Oropharyngeal pain [Recovering/Resolving]
  - Chronic obstructive pulmonary disease [Recovering/Resolving]
  - Candida infection [Unknown]
  - Sleep apnoea syndrome [Unknown]
  - Cardiac failure congestive [Recovered/Resolved]
  - Pulmonary fibrosis [Recovered/Resolved]
  - Local swelling [Recovered/Resolved]
  - Productive cough [Recovering/Resolving]
  - Sputum discoloured [Unknown]
